FAERS Safety Report 4904727-4 (Version None)
Quarter: 2006Q1

REPORT INFORMATION
  Report Type: 
  Country: None (occurrence: None)
  Receive Date: 20060208
  Receipt Date: 20050926
  Transmission Date: 20060701
  Serious: No
  Sender: FDA-Public Use
  Company Number: US-GLAXOSMITHKLINE-A0575896A

PATIENT
  Age: 56 Year
  Sex: Male

DRUGS (2)
  1. PAXIL [Suspect]
     Indication: FIBROMYALGIA
     Dosage: 20MG PER DAY
     Route: 048
     Dates: start: 20010701, end: 20020401
  2. ALEVE [Concomitant]

REACTIONS (7)
  - ANXIETY [None]
  - DELUSION [None]
  - HYPERHIDROSIS [None]
  - INITIAL INSOMNIA [None]
  - IRRITABILITY [None]
  - MOOD ALTERED [None]
  - NERVOUSNESS [None]
